FAERS Safety Report 4911233-X (Version None)
Quarter: 2006Q1

REPORT INFORMATION
  Report Type: 
  Country: None (occurrence: None)
  Receive Date: 20060209
  Receipt Date: 20060203
  Transmission Date: 20060701
  Serious: Yes (Other)
  Sender: FDA-Public Use
  Company Number: 200610423GDS

PATIENT
  Age: 51 Year
  Sex: Female

DRUGS (19)
  1. AVELOX [Suspect]
     Dosage: 400 MG
  2. BIAXIN XL [Suspect]
     Dosage: 1 G, QD, ORAL
     Route: 048
  3. NEORAL [Suspect]
     Dosage: 100 MG, BID, ORAL
     Route: 048
  4. ZOCOR [Suspect]
     Dosage: 20 MG, QD, ORAL
     Route: 048
  5. ACETAMINOPHEN [Concomitant]
  6. ATENOLOL [Concomitant]
  7. AZATHIOPRINE [Concomitant]
  8. CALCIUM CARBONATE [Concomitant]
  9. CLONAZEPAM [Concomitant]
  10. FOSAMAX [Concomitant]
  11. IMDUR [Concomitant]
  12. NORFLOXACIN [Concomitant]
  13. NOVASEN [Concomitant]
  14. PREDNISONE [Concomitant]
  15. SODIUM BICARBONATE [Concomitant]
  16. SYNTHROID [Concomitant]
  17. VITAMIN D [Concomitant]
  18. VITAMIN E [Concomitant]
  19. XANAX [Concomitant]

REACTIONS (6)
  - DIFFICULTY IN WALKING [None]
  - DRUG INTERACTION [None]
  - DRUG LEVEL INCREASED [None]
  - MOBILITY DECREASED [None]
  - RENAL FAILURE ACUTE [None]
  - RHABDOMYOLYSIS [None]
